FAERS Safety Report 4606104-2 (Version None)
Quarter: 2005Q2

REPORT INFORMATION
  Report Type: 
  Country: None (occurrence: None)
  Receive Date: 20050303
  Receipt Date: 20041109
  Transmission Date: 20051028
  Serious: No
  Sender: FDA-Public Use
  Company Number: 200410979BWH

PATIENT
  Age: 84 Year
  Sex: Male

DRUGS (12)
  1. LEVITRA [Suspect]
     Indication: ERECTILE DYSFUNCTION
     Dosage: 10 MG, OW, ORAL
     Route: 048
  2. LEVITRA [Suspect]
     Indication: ERECTILE DYSFUNCTION
     Dosage: 10 MG, OW, ORAL
     Route: 048
     Dates: start: 20031205
  3. VIAGRA [Concomitant]
  4. ALLOPURINOL [Concomitant]
  5. AVAPRO [Concomitant]
  6. ZAROXOLYN [Concomitant]
  7. ATENOLOL [Concomitant]
  8. NIACIN [Concomitant]
  9. B12 [Concomitant]
  10. B6 [Concomitant]
  11. FOLIC ACID [Concomitant]
  12. ASPIRIN [Concomitant]

REACTIONS (7)
  - ABNORMAL DREAMS [None]
  - CYANOPSIA [None]
  - DRUG INEFFECTIVE [None]
  - ERECTILE DYSFUNCTION [None]
  - PENIS DISORDER [None]
  - SPONTANEOUS PENILE ERECTION [None]
  - THERAPEUTIC RESPONSE DELAYED [None]
